FAERS Safety Report 7499645-4 (Version None)
Quarter: 2011Q2

REPORT INFORMATION
  Report Type: 
  Country: None (occurrence: None)
  Receive Date: 20110524
  Receipt Date: 20110516
  Transmission Date: 20111010
  Serious: Yes (Other)
  Sender: FDA-Public Use
  Company Number: CA-ROCHE-747350

PATIENT
  Sex: Female
  Weight: 48 kg

DRUGS (2)
  1. BEVACIZUMAB [Suspect]
     Indication: GLIOBLASTOMA
     Dosage: FORM: INFUSION
     Route: 042
     Dates: start: 20100826, end: 20101202
  2. ETOPOSIDE [Concomitant]

REACTIONS (10)
  - CONJUNCTIVITIS INFECTIVE [None]
  - DIPLOPIA [None]
  - OROPHARYNGEAL PAIN [None]
  - ACNE [None]
  - DYSPHONIA [None]
  - NAUSEA [None]
  - COUGH [None]
  - VOMITING [None]
  - VISION BLURRED [None]
  - BRAIN NEOPLASM [None]
